FAERS Safety Report 8877576 (Version 1)
Quarter: 2012Q4

REPORT INFORMATION
  Report Type: Spontaneous
  Country: US (occurrence: None)
  Receive Date: 20121026
  Receipt Date: 20121026
  Transmission Date: 20130627
  Serious: Yes (Other)
  Sender: FDA-Public Use
  Company Number: None

PATIENT
  Age: 58 Year
  Sex: Female
  Weight: 49.9 kg

DRUGS (1)
  1. CLARITHROMYCIN [Suspect]
     Indication: HELICOBACTER PYLORI GASTRITIS
     Dosage: 500mg  2x  po
     Route: 048
     Dates: start: 20121019, end: 20121025

REACTIONS (5)
  - Headache [None]
  - Swollen tongue [None]
  - Oropharyngeal pain [None]
  - Dizziness [None]
  - Hallucination [None]
